FAERS Safety Report 8214110-4 (Version None)
Quarter: 2012Q1

REPORT INFORMATION
  Report Type: 
  Country: None (occurrence: None)
  Receive Date: 20120314
  Receipt Date: 20120314
  Transmission Date: 20120608
  Serious: Yes (Hospitalization)
  Sender: FDA-Public Use
  Company Number: None

PATIENT
  Age: 65 Year
  Sex: Male
  Weight: 98.6 kg

DRUGS (6)
  1. FLOMAX [Suspect]
     Indication: HYPERTENSION
     Dosage: 0.4 MG DAILY PO RECENT
     Route: 048
  2. TOPROL-XL [Concomitant]
  3. ASPIRIN [Concomitant]
  4. NORVASC [Suspect]
     Indication: HYPERTENSION
     Dosage: 5MG DAILY PO CHRONIC
     Route: 048
  5. M.V.I. [Concomitant]
  6. ZINC GLUCONATE [Concomitant]

REACTIONS (3)
  - SYNCOPE [None]
  - FALL [None]
  - ORTHOSTATIC HYPOTENSION [None]
